FAERS Safety Report 5194732-8 (Version None)
Quarter: 2006Q4

REPORT INFORMATION
  Report Type: 
  Country: None (occurrence: None)
  Receive Date: 20061229
  Receipt Date: 20061219
  Transmission Date: 20070319
  Serious: Yes (Other)
  Sender: FDA-Public Use
  Company Number: GB-AVENTIS-200622909GDDC

PATIENT
  Age: 28 Year
  Sex: Female

DRUGS (1)
  1. CLOMID [Suspect]
     Indication: OVULATION INDUCTION

REACTIONS (6)
  - CHEST PAIN [None]
  - CONDITION AGGRAVATED [None]
  - GAIT DISTURBANCE [None]
  - MYOCARDIAL INFARCTION [None]
  - PELVIC PAIN [None]
  - THROAT IRRITATION [None]
